FAERS Safety Report 8400609-4 (Version None)
Quarter: 2012Q2

REPORT INFORMATION
  Report Type: 
  Country: None (occurrence: None)
  Receive Date: 20120531
  Receipt Date: 20120528
  Transmission Date: 20120825
  Serious: Yes (Other)
  Sender: FDA-Public Use
  Company Number: IT-GILEAD-2012-0055641

PATIENT
  Sex: Female

DRUGS (4)
  1. BONVIVA                            /01304701/ [Concomitant]
  2. VIREAD [Suspect]
     Indication: HIV INFECTION
     Dosage: 300 MG, QD
     Route: 048
     Dates: start: 20080410, end: 20120406
  3. DIBASE [Concomitant]
  4. EFAVIRENZ [Concomitant]

REACTIONS (1)
  - RENAL FUNCTION TEST ABNORMAL [None]
